FAERS Safety Report 25550948 (Version 1)
Quarter: 2025Q3

REPORT INFORMATION
  Report Type: Spontaneous
  Country: US (occurrence: US)
  Receive Date: 20250714
  Receipt Date: 20250714
  Transmission Date: 20251021
  Serious: No
  Sender: INTRA-CELLULAR THERAPIES
  Company Number: US-INTRA-CELLULAR THERAPIES, INC.-2025ICT00694

PATIENT
  Sex: Female

DRUGS (2)
  1. CAPLYTA [Suspect]
     Active Substance: LUMATEPERONE
     Indication: Bipolar disorder
     Dosage: 42 MG,1X/DAY AT BEDTIME
     Route: 048
  2. TIRZEPATIDE [Concomitant]
     Active Substance: TIRZEPATIDE

REACTIONS (3)
  - Increased appetite [Unknown]
  - Weight increased [Unknown]
  - Fatigue [Unknown]
